FAERS Safety Report 14433567 (Version 3)
Quarter: 2018Q2

REPORT INFORMATION
  Report Type: Spontaneous
  Country: US (occurrence: US)
  Receive Date: 20180124
  Receipt Date: 20180409
  Transmission Date: 20180711
  Serious: Yes (Hospitalization, Other)
  Sender: FDA-Public Use
  Company Number: US-INCYTE CORPORATION-2017IN010781

PATIENT

DRUGS (1)
  1. JAKAFI [Suspect]
     Active Substance: RUXOLITINIB
     Indication: MYELOPROLIFERATIVE NEOPLASM
     Dosage: 5 MG, BID
     Route: 048
     Dates: start: 20161208, end: 20180110

REACTIONS (7)
  - Influenza [Unknown]
  - Lung infection [Recovered/Resolved]
  - Cardiac failure congestive [Unknown]
  - Immune system disorder [Unknown]
  - Dyspnoea [Unknown]
  - Off label use [Unknown]
  - Cough [Unknown]

NARRATIVE: CASE EVENT DATE: 20170412
